FAERS Safety Report 20217236 (Version 1)
Quarter: 2021Q4

REPORT INFORMATION
  Report Type: Spontaneous
  Country: NL (occurrence: NL)
  Receive Date: 20211222
  Receipt Date: 20211222
  Transmission Date: 20220303
  Serious: No
  Sender: FDA-Public Use
  Company Number: NL-LUPIN PHARMACEUTICALS INC.-2021-25031

PATIENT
  Age: 38 Year
  Sex: Female

DRUGS (8)
  1. CARVEDILOL [Suspect]
     Active Substance: CARVEDILOL
     Indication: Left ventricular enlargement
     Dosage: 3.125 MILLIGRAM, BID
     Route: 065
     Dates: start: 2015
  2. CARVEDILOL [Suspect]
     Active Substance: CARVEDILOL
     Indication: Systolic dysfunction
  3. ENALAPRIL [Suspect]
     Active Substance: ENALAPRIL
     Indication: Left ventricular enlargement
     Dosage: 5 MILLIGRAM, QD; (CONTINUED)
     Route: 065
     Dates: start: 2015
  4. ENALAPRIL [Suspect]
     Active Substance: ENALAPRIL
     Indication: Systolic dysfunction
  5. DOXORUBICIN [Concomitant]
     Active Substance: DOXORUBICIN
     Indication: Intraductal proliferative breast lesion
     Dosage: UNK, [(RECEIVED FOUR CYCLES (CUMULATIVE DOSE 222MG/M^2)]
     Route: 065
     Dates: start: 2014
  6. CYCLOPHOSPHAMIDE [Concomitant]
     Active Substance: CYCLOPHOSPHAMIDE
     Indication: Intraductal proliferative breast lesion
     Dosage: UNK, RECEIVED FOUR CYCLES
     Route: 065
     Dates: start: 2014
  7. PACLITAXEL [Concomitant]
     Active Substance: PACLITAXEL
     Indication: Intraductal proliferative breast lesion
     Dosage: UNK, RECEIVED 12 TIMES
     Route: 065
     Dates: start: 2014
  8. TAMOXIFEN [Concomitant]
     Active Substance: TAMOXIFEN
     Indication: Intraductal proliferative breast lesion
     Dosage: UNK
     Route: 065
     Dates: start: 2014

REACTIONS (1)
  - Orthostatic hypotension [Unknown]

NARRATIVE: CASE EVENT DATE: 20150101
